FAERS Safety Report 6192960-6 (Version None)
Quarter: 2009Q2

REPORT INFORMATION
  Report Type: 
  Country: None (occurrence: None)
  Receive Date: 20090518
  Receipt Date: 20090507
  Transmission Date: 20091009
  Serious: Yes (Other)
  Sender: FDA-Public Use
  Company Number: US-BIOGENIDEC-2009BI009593

PATIENT
  Age: 53 Year
  Sex: Female

DRUGS (4)
  1. AVONEX [Suspect]
     Indication: MULTIPLE SCLEROSIS
     Route: 030
     Dates: start: 20010101, end: 20030101
  2. AVONEX [Suspect]
     Route: 030
     Dates: start: 20030101, end: 20050101
  3. AVONEX [Suspect]
     Route: 030
     Dates: start: 20050101
  4. AVONEX [Suspect]
     Route: 030

REACTIONS (6)
  - FEELING HOT [None]
  - MUSCULAR WEAKNESS [None]
  - MYASTHENIA GRAVIS [None]
  - PHOTOSENSITIVITY REACTION [None]
  - SENSATION OF HEAVINESS [None]
  - STRABISMUS [None]
